FAERS Safety Report 9313023 (Version 1)
Quarter: 2013Q2

REPORT INFORMATION
  Report Type: Spontaneous
  Country: US (occurrence: US)
  Receive Date: 20130528
  Receipt Date: 20130528
  Transmission Date: 20140414
  Serious: No
  Sender: FDA-Public Use
  Company Number: US-ABBOTT-13P-163-1082862-00

PATIENT
  Sex: Male
  Weight: 122.13 kg

DRUGS (16)
  1. ANDROGEL [Suspect]
     Indication: BLOOD TESTOSTERONE DECREASED
     Dosage: 4 PUMPS DAILY
     Route: 061
     Dates: start: 2012, end: 201303
  2. ANDROGEL [Suspect]
     Dosage: 5 PUMPS DAILY, AS INSTRUCTED BY PRESRIBING MD.
     Route: 061
     Dates: start: 201303
  3. ANDROGEL [Suspect]
     Indication: BLOOD TESTOSTERONE DECREASED
     Route: 061
  4. ANDROGEL [Suspect]
     Route: 061
     Dates: end: 2012
  5. NEUROTIN [Concomitant]
     Indication: BACK PAIN
  6. CLARINEX [Concomitant]
     Indication: HYPERSENSITIVITY
  7. SINGULAIR [Concomitant]
     Indication: SINUS DISORDER
  8. SINGULAIR [Concomitant]
     Indication: HYPERSENSITIVITY
  9. TRAMADOL [Concomitant]
     Indication: BACK PAIN
  10. SYNTHROID [Concomitant]
     Indication: THYROID DISORDER
  11. INNOPRAN XL [Concomitant]
     Indication: MIGRAINE
  12. VITAMIN D [Concomitant]
     Indication: PRODUCT USED FOR UNKNOWN INDICATION
     Route: 048
  13. VISTARIL [Concomitant]
     Indication: SLEEP DISORDER
  14. EFFEXOR XR [Concomitant]
     Indication: DEPRESSION
  15. DEXILANT [Concomitant]
     Indication: GASTRIC DISORDER
  16. UNKNOWN PAIN MEDICATION [Concomitant]
     Indication: ARTHRALGIA

REACTIONS (1)
  - Blood testosterone decreased [Not Recovered/Not Resolved]
